FAERS Safety Report 14718528 (Version 1)
Quarter: 2018Q2

REPORT INFORMATION
  Report Type: Spontaneous
  Country: CA (occurrence: CA)
  Receive Date: 20180404
  Receipt Date: 20180404
  Transmission Date: 20180711
  Serious: Yes (Death)
  Sender: FDA-Public Use
  Company Number: CA-TEVA-2018-CA-875794

PATIENT
  Sex: Female
  Weight: 42 kg

DRUGS (5)
  1. AMITRIPTYLINE [Concomitant]
     Active Substance: AMITRIPTYLINE
  2. LORAZEPAM. [Concomitant]
     Active Substance: LORAZEPAM
  3. FENTANYL. [Suspect]
     Active Substance: FENTANYL
     Route: 065
  4. TRAMACET [Concomitant]
     Active Substance: ACETAMINOPHEN\TRAMADOL
  5. PREDNISONE. [Concomitant]
     Active Substance: PREDNISONE

REACTIONS (2)
  - Toxicologic test abnormal [Fatal]
  - Chest discomfort [Fatal]
